FAERS Safety Report 5924981-X (Version None)
Quarter: 2008Q3

REPORT INFORMATION
  Report Type: 
  Country: None (occurrence: None)
  Receive Date: 20080909
  Receipt Date: 20080603
  Transmission Date: 20090109
  Serious: Yes (Hospitalization)
  Sender: FDA-Public Use
  Company Number: 163-20785-08040378

PATIENT
  Age: 62 Year
  Sex: Female

DRUGS (9)
  1. THALOMID [Suspect]
     Indication: MULTIPLE MYELOMA
     Dosage: 300 MG, 3 IN 1 D, ORAL
     Route: 048
     Dates: start: 20080218, end: 20080324
  2. LASIX [Concomitant]
  3. ZOCOR [Concomitant]
  4. POTASSIUM (POTASSIUM) [Concomitant]
  5. ASPIRIN [Concomitant]
  6. FE (TEGAFUR) [Concomitant]
  7. DECADRON [Concomitant]
  8. ALKERAN [Concomitant]
  9. COUMADIN [Concomitant]

REACTIONS (4)
  - ASTHENIA [None]
  - FATIGUE [None]
  - NEUTROPENIA [None]
  - PYREXIA [None]
